APPROVED DRUG PRODUCT: LIDOCAINE
Active Ingredient: LIDOCAINE
Strength: 1.8%
Dosage Form/Route: PATCH;TOPICAL
Application: A217221 | Product #001 | TE Code: AB
Applicant: DIFGEN PHARMACEUTICALS LLC
Approved: Mar 25, 2025 | RLD: No | RS: No | Type: RX